FAERS Safety Report 4924804-1 (Version None)
Quarter: 2006Q1

REPORT INFORMATION
  Report Type: 
  Country: None (occurrence: None)
  Receive Date: 20060222
  Receipt Date: 20060209
  Transmission Date: 20060701
  Serious: Yes (Hospitalization)
  Sender: FDA-Public Use
  Company Number: TPA2006A00251

PATIENT
  Sex: Female
  Weight: 79.8331 kg

DRUGS (6)
  1. ACTOS [Suspect]
     Indication: DIABETES MELLITUS NON-INSULIN-DEPENDENT
     Dosage: UNK; 1 IN 1 D; PER ORAL
     Route: 048
     Dates: start: 20050101
  2. ALLEGRA D (ALLEGRA-D SLOW RELEASE) [Concomitant]
  3. ADVAIR DISKUS 100/50 [Concomitant]
  4. ALBUTEROL [Concomitant]
  5. FIORICET [Concomitant]
  6. GLUCOVANCE [Concomitant]

REACTIONS (6)
  - ABDOMINAL OPERATION [None]
  - BLOOD GLUCOSE INCREASED [None]
  - DIARRHOEA [None]
  - HEADACHE [None]
  - STOMACH DISCOMFORT [None]
  - WEIGHT INCREASED [None]
